FAERS Safety Report 11156763 (Version 1)
Quarter: 2015Q2

REPORT INFORMATION
  Report Type: Spontaneous
  Country: IL (occurrence: US)
  Receive Date: 20150602
  Receipt Date: 20150602
  Transmission Date: 20150821
  Serious: Yes (Hospitalization, Other)
  Sender: FDA-Public Use
  Company Number: US-BAUSCH-BL-2015-014184

PATIENT
  Age: 6 Year
  Sex: Male

DRUGS (2)
  1. CYCLOPENTOLATE [Suspect]
     Active Substance: CYCLOPENTOLATE
     Indication: AMBLYOPIA
     Dosage: INSTALLED TWICE IN EACH EYE 5 MIN APART
     Route: 061
  2. CYCLOPENTOLATE [Suspect]
     Active Substance: CYCLOPENTOLATE
     Indication: ASTIGMATISM

REACTIONS (3)
  - Staring [Unknown]
  - Eye movement disorder [Unknown]
  - Seizure [Unknown]

NARRATIVE: CASE EVENT DATE: 1998
